FAERS Safety Report 14410481 (Version 3)
Quarter: 2018Q1

REPORT INFORMATION
  Report Type: Spontaneous
  Country: UA (occurrence: UA)
  Receive Date: 20180119
  Receipt Date: 20180323
  Transmission Date: 20180509
  Serious: Yes (Other)
  Sender: FDA-Public Use
  Company Number: UA-ASTELLAS-2018US003107

PATIENT
  Age: 36 Year
  Sex: Female

DRUGS (1)
  1. ERLOTINIB [Suspect]
     Active Substance: ERLOTINIB
     Indication: LUNG ADENOCARCINOMA
     Dosage: UNK UNK, UNKNOWN FREQ.
     Route: 065
     Dates: start: 20161125

REACTIONS (11)
  - Hydrocephalus [Recovered/Resolved]
  - Nasal crusting [Unknown]
  - Visual acuity reduced [Not Recovered/Not Resolved]
  - Ocular discomfort [Unknown]
  - Seizure [Unknown]
  - Headache [Not Recovered/Not Resolved]
  - Loss of consciousness [Recovered/Resolved]
  - Parosmia [Unknown]
  - Rash [Unknown]
  - Erythema of eyelid [Unknown]
  - Hypoacusis [Unknown]

NARRATIVE: CASE EVENT DATE: 201709
